FAERS Safety Report 20661789 (Version 11)
Quarter: 2024Q4

REPORT INFORMATION
  Report Type: Spontaneous
  Country: GB (occurrence: GB)
  Receive Date: 20220401
  Receipt Date: 20241206
  Transmission Date: 20250115
  Serious: Yes (Death, Life-Threatening, Hospitalization, Disabling, Other)
  Sender: ALKEM
  Company Number: None

PATIENT
  Age: 31 Year
  Sex: Female
  Weight: 64 kg

DRUGS (100)
  1. QUETIAPINE FUMARATE [Suspect]
     Active Substance: QUETIAPINE FUMARATE
     Indication: Psychotic disorder
     Dosage: UNK (TABLETS)
     Route: 048
     Dates: start: 19990801, end: 20110706
  2. QUETIAPINE FUMARATE [Suspect]
     Active Substance: QUETIAPINE FUMARATE
     Dosage: UNK (TABLETS)
     Route: 048
     Dates: start: 19990801, end: 20110706
  3. QUETIAPINE FUMARATE [Suspect]
     Active Substance: QUETIAPINE FUMARATE
     Dosage: 300 MILLIGRAM (FILM-COATED TABLET)
     Route: 048
     Dates: start: 20110224, end: 20110506
  4. OMEPRAZOLE [Suspect]
     Active Substance: OMEPRAZOLE
     Indication: Dyspepsia
     Dosage: 20 MILLIGRAM, QD (CAPSULE) (PER DAY) (Q24H)
     Route: 048
     Dates: start: 20110525
  5. AMITRIPTYLINE [Suspect]
     Active Substance: AMITRIPTYLINE
     Indication: Muscle spasms
     Dosage: 25 MILLIGRAM, HS TABLET (PER DAY)
     Route: 065
     Dates: start: 20110810
  6. AMITRIPTYLINE [Suspect]
     Active Substance: AMITRIPTYLINE
     Indication: Serotonin syndrome
     Dosage: UNK, HS (AT NIGHT) (PER DAY)
     Route: 065
  7. AMITRIPTYLINE [Suspect]
     Active Substance: AMITRIPTYLINE
     Indication: Neuralgia
     Dosage: UNK, HS (AT NIGHT)
     Route: 065
  8. AMITRIPTYLINE [Suspect]
     Active Substance: AMITRIPTYLINE
     Indication: Drug withdrawal syndrome
     Dosage: UNK
     Route: 065
  9. CLONAZEPAM [Suspect]
     Active Substance: CLONAZEPAM
     Indication: Sedation
     Dosage: UNK (UNSURE) (TABLET)
     Route: 048
     Dates: start: 20110224, end: 20110410
  10. CLONAZEPAM [Suspect]
     Active Substance: CLONAZEPAM
     Dosage: UNK (UNSURE)
     Route: 048
     Dates: end: 20110410
  11. CODEINE PHOSPHATE [Interacting]
     Active Substance: CODEINE PHOSPHATE
     Indication: Serotonin syndrome
     Dosage: UNK
     Route: 048
     Dates: start: 20110224, end: 20110410
  12. CODEINE PHOSPHATE [Interacting]
     Active Substance: CODEINE PHOSPHATE
     Indication: Analgesic therapy
     Dosage: UNK, QD 15-30 MG (EVERY 24 HOUR)
     Route: 048
     Dates: start: 20110615, end: 20110723
  13. CODEINE PHOSPHATE [Interacting]
     Active Substance: CODEINE PHOSPHATE
     Dosage: UNK (15-30 MILLIGRAM)
     Route: 048
     Dates: start: 20110615, end: 20110723
  14. CODEINE PHOSPHATE [Interacting]
     Active Substance: CODEINE PHOSPHATE
     Dosage: UNK
     Route: 048
  15. CODEINE PHOSPHATE [Interacting]
     Active Substance: CODEINE PHOSPHATE
     Dosage: UNK
     Route: 048
  16. CODEINE PHOSPHATE [Interacting]
     Active Substance: CODEINE PHOSPHATE
     Dosage: UNK (PAST DRUG REGIMEN)
     Route: 065
  17. CODEINE PHOSPHATE [Interacting]
     Active Substance: CODEINE PHOSPHATE
     Dosage: UNK (PAST DRUG REGIMEN)
     Route: 065
  18. CODEINE PHOSPHATE [Interacting]
     Active Substance: CODEINE PHOSPHATE
     Dosage: 30 MILLIGRAM, QID
     Route: 048
  19. CODEINE PHOSPHATE [Interacting]
     Active Substance: CODEINE PHOSPHATE
     Dosage: 30 MILLIGRAM
     Route: 048
  20. CODEINE PHOSPHATE [Interacting]
     Active Substance: CODEINE PHOSPHATE
     Dosage: 30 MILLIGRAM, QID
     Route: 048
     Dates: start: 20110615, end: 20110723
  21. DIAZEPAM [Suspect]
     Active Substance: DIAZEPAM
     Indication: Muscle spasms
     Dosage: 8 MILLIGRAM, QID (PER DAY) (20 MG, QD 5 MILLIGRAM, QID (5 MG QDS AND NOW)
     Route: 065
     Dates: start: 20110725
  22. DIAZEPAM [Suspect]
     Active Substance: DIAZEPAM
     Indication: Serotonin syndrome
     Dosage: 20 MILLIGRAM (5 MILLIGRAM, QD (5 MG QDS AND NOW ON 2-2-4 MG))
     Route: 048
     Dates: start: 20110725
  23. DIAZEPAM [Suspect]
     Active Substance: DIAZEPAM
     Indication: Depression
     Dosage: 5 MILLIGRAM, QD (PER DAY)
     Route: 048
     Dates: start: 20110725
  24. DIAZEPAM [Suspect]
     Active Substance: DIAZEPAM
     Dosage: 20 MILLIGRAM, QD (PER DAY)
     Route: 048
     Dates: start: 20110725
  25. DIAZEPAM [Suspect]
     Active Substance: DIAZEPAM
     Dosage: 5 MILLIGRAM, QD (PER DAY) (AND NOW ON 2-2-4 MG)
     Route: 048
     Dates: start: 20110725
  26. DIAZEPAM [Suspect]
     Active Substance: DIAZEPAM
     Dosage: 5 MILLIGRAM, QD (PER DAY) (AND NOW ON 2-2-4 MG)
     Route: 048
     Dates: start: 20110725
  27. DIAZEPAM [Suspect]
     Active Substance: DIAZEPAM
     Dosage: 5 MILLIGRAM
     Route: 048
  28. DIAZEPAM [Suspect]
     Active Substance: DIAZEPAM
     Dosage: 20 MILLIGRAM
     Route: 048
     Dates: start: 20110725, end: 20110725
  29. DIAZEPAM [Suspect]
     Active Substance: DIAZEPAM
     Dosage: 8 MILLIGRAM, QID
     Route: 048
     Dates: start: 20110725
  30. DIAZEPAM [Suspect]
     Active Substance: DIAZEPAM
     Dosage: 8 MILLIGRAM, QD
     Route: 048
     Dates: start: 20110725
  31. DIAZEPAM [Suspect]
     Active Substance: DIAZEPAM
     Dosage: UNK
     Route: 065
     Dates: start: 20110725
  32. DOMPERIDONE [Suspect]
     Active Substance: DOMPERIDONE
     Indication: Product used for unknown indication
     Dosage: UNK (1 TRIMESTER)
     Route: 065
  33. DOMPERIDONE [Suspect]
     Active Substance: DOMPERIDONE
     Dosage: UNK (TABLET)
     Route: 048
  34. DOMPERIDONE [Suspect]
     Active Substance: DOMPERIDONE
     Dosage: UNK
     Route: 048
     Dates: start: 20100923, end: 20101108
  35. DOMPERIDONE [Suspect]
     Active Substance: DOMPERIDONE
     Dosage: UNK
     Route: 065
  36. LORAZEPAM [Suspect]
     Active Substance: LORAZEPAM
     Indication: Sedation
     Dosage: 4 MILLIGRAM, OD
     Route: 048
     Dates: start: 20110202, end: 20110410
  37. LORAZEPAM [Suspect]
     Active Substance: LORAZEPAM
     Dosage: 4 MILLIGRAM, QID
     Route: 048
     Dates: start: 20110224, end: 20110410
  38. LORAZEPAM [Suspect]
     Active Substance: LORAZEPAM
     Dosage: 1 MILLIGRAM, QID
     Route: 048
     Dates: start: 20110224, end: 20110410
  39. LORAZEPAM [Suspect]
     Active Substance: LORAZEPAM
     Dosage: 1 MILLIGRAM, QID
     Route: 048
     Dates: start: 20110523, end: 20110627
  40. LORAZEPAM [Suspect]
     Active Substance: LORAZEPAM
     Dosage: 1 MILLIGRAM
     Route: 048
     Dates: start: 20110725
  41. LORAZEPAM [Suspect]
     Active Substance: LORAZEPAM
     Dosage: 1 MILLIGRAM
     Route: 048
     Dates: start: 20110725
  42. LORAZEPAM [Suspect]
     Active Substance: LORAZEPAM
     Dosage: 1 MILLIGRAM, OD
     Route: 048
     Dates: start: 20110725
  43. LORAZEPAM [Suspect]
     Active Substance: LORAZEPAM
     Dosage: 4 MILLIGRAM, OD
     Route: 048
     Dates: start: 20110523, end: 20110627
  44. LORAZEPAM [Suspect]
     Active Substance: LORAZEPAM
     Dosage: 16 MILLIGRAM, QD (4 MG QID)
     Route: 065
     Dates: start: 20110523, end: 20110627
  45. MIRTAZAPINE [Suspect]
     Active Substance: MIRTAZAPINE
     Indication: Psychotic disorder
     Dosage: 30 MILLIGRAM, QD AND 15 MG AT NIGHT 30 MG, ONCE PER DAY (UNSURE)
     Route: 048
     Dates: start: 20100923, end: 20101108
  46. MIRTAZAPINE [Suspect]
     Active Substance: MIRTAZAPINE
     Indication: Depression
     Dosage: 30 MILLIGRAM, OD (15 MILLIGRAM AT NIGHT 30 MG, ONCE PER DAY)
     Route: 048
     Dates: start: 20101007, end: 20101012
  47. MIRTAZAPINE [Suspect]
     Active Substance: MIRTAZAPINE
     Dosage: 15 MILLIGRAM, QD (30MG IN THE DAY AND 15MG AT NIGHT)
     Route: 048
     Dates: start: 20110224, end: 20110506
  48. MIRTAZAPINE [Suspect]
     Active Substance: MIRTAZAPINE
     Dosage: 30 MILLIGRAM, OD (30MG IN THE DAY AND 15MG AT NIGHT)
     Route: 048
     Dates: start: 20110224, end: 20110506
  49. MIRTAZAPINE [Suspect]
     Active Substance: MIRTAZAPINE
     Dosage: UNK (30MG IN THE DAY AND 15MG AT NIGHT)
     Route: 065
  50. MIRTAZAPINE [Suspect]
     Active Substance: MIRTAZAPINE
     Dosage: UNK
     Route: 065
     Dates: start: 20100923, end: 20101108
  51. MIRTAZAPINE [Suspect]
     Active Substance: MIRTAZAPINE
     Dosage: 15 MILLIGRAM, QD (30MG IN THE DAY AND 15MG AT NIGHT)
     Route: 048
     Dates: start: 20101007, end: 20101012
  52. PAROXETINE [Suspect]
     Active Substance: PAROXETINE
     Indication: Depression
     Dosage: 40 MILLIGRAM, QD (PER DAY)
     Route: 048
     Dates: start: 19990801, end: 20110706
  53. PAROXETINE [Suspect]
     Active Substance: PAROXETINE
     Indication: Post-traumatic stress disorder
     Dosage: 40 MILLIGRAM, OD
     Route: 048
     Dates: start: 19990801, end: 20110706
  54. PAROXETINE [Suspect]
     Active Substance: PAROXETINE
     Dosage: 40 MILLIGRAM (20 MG THREE TIMES A DAY)
     Route: 048
     Dates: end: 20110706
  55. PAROXETINE [Suspect]
     Active Substance: PAROXETINE
     Dosage: 60 MILLIGRAM, OD ( (PER DAY) (20 MG THREE TIMES A DAY) (TABLET))
     Route: 048
     Dates: start: 19990801
  56. PAROXETINE [Suspect]
     Active Substance: PAROXETINE
     Dosage: 60 MILLIGRAM, QD (20 MG 3 TIMES PER DAY)
     Route: 048
  57. PAROXETINE [Suspect]
     Active Substance: PAROXETINE
     Dosage: UNK
     Route: 048
  58. PAROXETINE [Suspect]
     Active Substance: PAROXETINE
     Dosage: UNK
     Route: 048
  59. PAROXETINE [Suspect]
     Active Substance: PAROXETINE
     Dosage: UNK
     Route: 065
  60. PAROXETINE [Suspect]
     Active Substance: PAROXETINE
     Dosage: UNK
     Route: 065
     Dates: start: 20081201, end: 20101210
  61. PAROXETINE [Suspect]
     Active Substance: PAROXETINE
     Dosage: 20 MILLIGRAM, TID
     Route: 065
  62. PAROXETINE [Suspect]
     Active Substance: PAROXETINE
     Dosage: 20 MILLIGRAM, TID
     Route: 065
  63. PAROXETINE [Suspect]
     Active Substance: PAROXETINE
     Dosage: 60 MILLIGRAM, TID
     Route: 048
  64. PHOSPHORUS [Suspect]
     Active Substance: PHOSPHORUS
     Indication: Product used for unknown indication
     Dosage: UNK
     Route: 065
  65. PROCYCLIDINE HYDROCHLORIDE [Suspect]
     Active Substance: PROCYCLIDINE HYDROCHLORIDE
     Indication: Oculogyric crisis
     Dosage: UNK
     Route: 065
     Dates: start: 19950615
  66. PROCYCLIDINE HYDROCHLORIDE [Suspect]
     Active Substance: PROCYCLIDINE HYDROCHLORIDE
     Indication: Extrapyramidal disorder
     Dosage: 5 MILLIGRAM, OD
     Route: 048
  67. PROCYCLIDINE HYDROCHLORIDE [Suspect]
     Active Substance: PROCYCLIDINE HYDROCHLORIDE
     Dosage: 5 MILLIGRAM, OD
     Route: 048
  68. PROCYCLIDINE HYDROCHLORIDE [Suspect]
     Active Substance: PROCYCLIDINE HYDROCHLORIDE
     Dosage: 20 MILLIGRAM, OD
     Route: 048
     Dates: start: 20110324, end: 20110506
  69. PROCYCLIDINE HYDROCHLORIDE [Suspect]
     Active Substance: PROCYCLIDINE HYDROCHLORIDE
     Dosage: 20 MILLIGRAM, QD (IN1ST TRIMESTER)
     Route: 048
     Dates: start: 20110415
  70. PROCYCLIDINE HYDROCHLORIDE [Suspect]
     Active Substance: PROCYCLIDINE HYDROCHLORIDE
     Dosage: 15 MILLIGRAM (5 MG, TID)
     Route: 048
     Dates: start: 20110503, end: 20110510
  71. PROCYCLIDINE HYDROCHLORIDE [Suspect]
     Active Substance: PROCYCLIDINE HYDROCHLORIDE
     Dosage: 15 MILLIGRAM (PER DAY)
     Route: 065
     Dates: start: 20110503, end: 20110510
  72. PROCYCLIDINE HYDROCHLORIDE [Suspect]
     Active Substance: PROCYCLIDINE HYDROCHLORIDE
     Dosage: UNK
     Route: 048
  73. PROCYCLIDINE HYDROCHLORIDE [Suspect]
     Active Substance: PROCYCLIDINE HYDROCHLORIDE
     Dosage: 5 MILLIGRAM, QD
     Route: 048
     Dates: start: 20110503, end: 20110510
  74. PROCYCLIDINE HYDROCHLORIDE [Suspect]
     Active Substance: PROCYCLIDINE HYDROCHLORIDE
     Dosage: UNK
     Route: 065
     Dates: start: 20110415
  75. PAROXETINE HYDROCHLORIDE [Suspect]
     Active Substance: PAROXETINE HYDROCHLORIDE
     Indication: Depression
     Dosage: 60 MILLIGRAM, QD (INTERRUPTED)
     Route: 048
  76. PAROXETINE HYDROCHLORIDE [Suspect]
     Active Substance: PAROXETINE HYDROCHLORIDE
     Dosage: 20 MILLIGRAM, TID (THREE TIMES PER DAY) (8 HOUR) (INTERRUPTED)
     Route: 048
     Dates: start: 19990801
  77. PAROXETINE HYDROCHLORIDE [Suspect]
     Active Substance: PAROXETINE HYDROCHLORIDE
     Dosage: 20 MILLIGRAM, BID (12 HOUR)
     Route: 048
     Dates: end: 20110706
  78. PAROXETINE HYDROCHLORIDE [Suspect]
     Active Substance: PAROXETINE HYDROCHLORIDE
     Dosage: UNK, (INTERRUPTED) (1 DOSE)
     Route: 048
     Dates: end: 20101210
  79. PAROXETINE HYDROCHLORIDE [Suspect]
     Active Substance: PAROXETINE HYDROCHLORIDE
     Dosage: UNK
     Route: 065
  80. PAROXETINE HYDROCHLORIDE [Suspect]
     Active Substance: PAROXETINE HYDROCHLORIDE
     Dosage: 60 MILLIGRAM, OD (INTERRUPTED)
     Route: 048
  81. PAROXETINE HYDROCHLORIDE [Suspect]
     Active Substance: PAROXETINE HYDROCHLORIDE
     Dosage: 40 MILLIGRAM, QD (INTERRUPTED) (20 MG (2 PER DAY))
     Route: 048
     Dates: end: 20110706
  82. PAROXETINE HYDROCHLORIDE [Suspect]
     Active Substance: PAROXETINE HYDROCHLORIDE
     Dosage: 20 MILLIGRAM (INTERRUPTED)
     Route: 048
  83. PAROXETINE HYDROCHLORIDE [Suspect]
     Active Substance: PAROXETINE HYDROCHLORIDE
     Dosage: 180 MILLIGRAM (60 MG TID)
     Route: 065
     Dates: start: 19990801
  84. PAROXETINE HYDROCHLORIDE [Suspect]
     Active Substance: PAROXETINE HYDROCHLORIDE
     Dosage: 20 MILLIGRAM, TID
     Route: 065
     Dates: end: 20110706
  85. PAROXETINE HYDROCHLORIDE [Suspect]
     Active Substance: PAROXETINE HYDROCHLORIDE
     Dosage: 20 MILLIGRAM, TID
     Route: 048
  86. PAROXETINE HYDROCHLORIDE [Suspect]
     Active Substance: PAROXETINE HYDROCHLORIDE
     Dosage: 60 MILLIGRAM, OD
     Route: 048
  87. TRAMADOL HYDROCHLORIDE [Suspect]
     Active Substance: TRAMADOL HYDROCHLORIDE
     Indication: Neck pain
     Dosage: 5 MILLIGRAM, QD
     Route: 044
  88. TRAMADOL HYDROCHLORIDE [Suspect]
     Active Substance: TRAMADOL HYDROCHLORIDE
     Indication: Back pain
     Dosage: 4 CYCLICAL, QD (PER DAY)
     Route: 048
     Dates: start: 20080722
  89. TRAMADOL HYDROCHLORIDE [Suspect]
     Active Substance: TRAMADOL HYDROCHLORIDE
     Indication: Analgesic therapy
     Dosage: UNK (UNSPECIFIED, 50-100, 4 CYCLICAL)
     Route: 048
     Dates: start: 20080722
  90. TRAMADOL HYDROCHLORIDE [Suspect]
     Active Substance: TRAMADOL HYDROCHLORIDE
     Indication: Oculogyric crisis
     Dosage: UNK, QD (DISCONTINUED AFTER 4 OR 5 DAYS)
     Route: 048
     Dates: start: 20081201, end: 20101210
  91. TRAMADOL HYDROCHLORIDE [Suspect]
     Active Substance: TRAMADOL HYDROCHLORIDE
     Indication: Pain
     Dosage: UNK
     Route: 048
     Dates: start: 20081201, end: 20101210
  92. TRAMADOL HYDROCHLORIDE [Suspect]
     Active Substance: TRAMADOL HYDROCHLORIDE
     Indication: Extrapyramidal disorder
     Dosage: UNK (PAST DRUG REGIMEN)
     Route: 065
  93. TRAMADOL HYDROCHLORIDE [Suspect]
     Active Substance: TRAMADOL HYDROCHLORIDE
     Dosage: UNK (PAST DRUG REGIMEN)
     Route: 065
  94. TRAMADOL HYDROCHLORIDE [Suspect]
     Active Substance: TRAMADOL HYDROCHLORIDE
     Dosage: UNK
     Route: 048
     Dates: start: 20110725
  95. TRAMADOL HYDROCHLORIDE [Suspect]
     Active Substance: TRAMADOL HYDROCHLORIDE
     Dosage: 4 MILLIGRAM, OD (DISCONTINUED AFTER 4 OR 5 DAYS, 4 CYCLICAL, QD 50-100 MG QD)
     Route: 065
     Dates: start: 20081201, end: 20101210
  96. TRAMADOL HYDROCHLORIDE [Suspect]
     Active Substance: TRAMADOL HYDROCHLORIDE
     Dosage: 100 MILLIGRAM, OD
     Route: 048
     Dates: start: 20081201, end: 20101210
  97. TRAMADOL HYDROCHLORIDE [Suspect]
     Active Substance: TRAMADOL HYDROCHLORIDE
     Dosage: UNK (4 QD) (4 CYCLICAL QD)
     Route: 065
  98. TRAMADOL HYDROCHLORIDE [Suspect]
     Active Substance: TRAMADOL HYDROCHLORIDE
     Dosage: 1 DOSAGE FORM
     Route: 065
     Dates: start: 20110725
  99. TRAMADOL HYDROCHLORIDE [Suspect]
     Active Substance: TRAMADOL HYDROCHLORIDE
     Dosage: 20 MILLIGRAM
     Route: 065
     Dates: start: 20110725
  100. TRAMADOL HYDROCHLORIDE [Suspect]
     Active Substance: TRAMADOL HYDROCHLORIDE
     Dosage: 4 DOSAGE FORM
     Route: 048

REACTIONS (125)
  - Cyanosis [Fatal]
  - Feeling of despair [Unknown]
  - Menstrual disorder [Unknown]
  - Disturbance in attention [Unknown]
  - Feeling jittery [Unknown]
  - Parosmia [Unknown]
  - Feeling of body temperature change [Unknown]
  - Toxicity to various agents [Unknown]
  - Paralysis [Unknown]
  - Mania [Unknown]
  - Cyanosis [Not Recovered/Not Resolved]
  - Schizophrenia [Not Recovered/Not Resolved]
  - Muscle disorder [Unknown]
  - Swollen tongue [Unknown]
  - Contusion [Not Recovered/Not Resolved]
  - Muscle disorder [Unknown]
  - Premature labour [Unknown]
  - Hypoaesthesia oral [Unknown]
  - Paralysis [Unknown]
  - Psychotic disorder [Recovered/Resolved]
  - Contusion [Unknown]
  - Muscle spasms [Unknown]
  - Vision blurred [Unknown]
  - Premature labour [Unknown]
  - Swelling face [Unknown]
  - Emotional disorder [Unknown]
  - Tinnitus [Unknown]
  - Sensory loss [Unknown]
  - Aphasia [Not Recovered/Not Resolved]
  - Mydriasis [Unknown]
  - Eye pain [Not Recovered/Not Resolved]
  - Eye pain [Unknown]
  - H1N1 influenza [Unknown]
  - Drug interaction [Unknown]
  - Gait disturbance [Unknown]
  - Drug interaction [Unknown]
  - Toxicity to various agents [Unknown]
  - Paralysis [Unknown]
  - Sleep disorder [Unknown]
  - Limb injury [Unknown]
  - Muscle spasms [Not Recovered/Not Resolved]
  - Premature labour [Unknown]
  - Illness [Unknown]
  - Illness [Unknown]
  - Schizophrenia [Unknown]
  - Gastric pH decreased [Unknown]
  - Visual impairment [Unknown]
  - Decreased appetite [Unknown]
  - Derealisation [Not Recovered/Not Resolved]
  - Visual impairment [Unknown]
  - Delirium [Unknown]
  - Nightmare [Unknown]
  - Anxiety [Unknown]
  - Agitation [Unknown]
  - Arthralgia [Unknown]
  - Asthenia [Unknown]
  - Blood sodium decreased [Unknown]
  - Depression [Unknown]
  - Speech disorder [Unknown]
  - Cogwheel rigidity [Unknown]
  - Balance disorder [Unknown]
  - Diarrhoea [Unknown]
  - Dizziness [Unknown]
  - Dizziness [Unknown]
  - Dyskinesia [Unknown]
  - Paralysis [Not Recovered/Not Resolved]
  - Drooling [Unknown]
  - Dystonia [Unknown]
  - Mood swings [Unknown]
  - Muscle rigidity [Unknown]
  - Dyspnoea [Unknown]
  - Drug withdrawal syndrome [Unknown]
  - Hyperhidrosis [Unknown]
  - Heart rate increased [Unknown]
  - Neuroleptic malignant syndrome [Unknown]
  - Pallor [Unknown]
  - Pyrexia [Unknown]
  - Vomiting [Unknown]
  - Restlessness [Unknown]
  - Tachycardia [Unknown]
  - Urinary retention [Unknown]
  - Headache [Unknown]
  - Seizure [Unknown]
  - Musculoskeletal stiffness [Unknown]
  - Contusion [Not Recovered/Not Resolved]
  - Pallor [Unknown]
  - Somnolence [Unknown]
  - Muscle rigidity [Unknown]
  - Seizure [Unknown]
  - Restlessness [Unknown]
  - Nightmare [Unknown]
  - Musculoskeletal stiffness [Unknown]
  - Nightmare [Unknown]
  - Paraesthesia [Unknown]
  - Swollen tongue [Unknown]
  - Dystonia [Unknown]
  - Fatigue [Unknown]
  - Fatigue [Unknown]
  - Restless legs syndrome [Not Recovered/Not Resolved]
  - Paraesthesia [Not Recovered/Not Resolved]
  - Speech disorder [Unknown]
  - Disorientation [Not Recovered/Not Resolved]
  - Dissociation [Not Recovered/Not Resolved]
  - Depersonalisation/derealisation disorder [Not Recovered/Not Resolved]
  - Somnolence [Not Recovered/Not Resolved]
  - Skin discolouration [Not Recovered/Not Resolved]
  - Serotonin syndrome [Not Recovered/Not Resolved]
  - Tremor [Not Recovered/Not Resolved]
  - Contusion [Not Recovered/Not Resolved]
  - Hypoaesthesia [Not Recovered/Not Resolved]
  - Incontinence [Not Recovered/Not Resolved]
  - Confusional state [Not Recovered/Not Resolved]
  - Aphasia [Not Recovered/Not Resolved]
  - Pruritus [Unknown]
  - Hallucination [Unknown]
  - Headache [Not Recovered/Not Resolved]
  - Hallucinations, mixed [Unknown]
  - Suicidal ideation [Not Recovered/Not Resolved]
  - Suicidal ideation [Not Recovered/Not Resolved]
  - Off label use [Unknown]
  - Maternal exposure during pregnancy [Unknown]
  - Exposure during pregnancy [Unknown]
  - Exposure during pregnancy [Unknown]
  - Therapeutic product ineffective [Unknown]
  - Therapeutic product ineffective [Unknown]

NARRATIVE: CASE EVENT DATE: 20030101
